FAERS Safety Report 7465899-3 (Version None)
Quarter: 2011Q2

REPORT INFORMATION
  Report Type: 
  Country: None (occurrence: None)
  Receive Date: 20110509
  Receipt Date: 20100505
  Transmission Date: 20111010
  Serious: No
  Sender: FDA-Public Use
  Company Number: US-ALEXION-A201000249

PATIENT
  Sex: Female
  Weight: 72.8 kg

DRUGS (16)
  1. SOLIRIS [Suspect]
     Indication: PAROXYSMAL NOCTURNAL HAEMOGLOBINURIA
     Dosage: 600 MG, QWK
     Route: 042
     Dates: start: 20080414, end: 20080505
  2. ALPHAGAN                           /01341101/ [Concomitant]
     Indication: GLAUCOMA
     Dosage: 1 GTT, TID OU
  3. ZOLOFT [Concomitant]
     Indication: DEPRESSION
     Dosage: 100 MG, QD
  4. ACCUPRIL [Concomitant]
     Indication: HYPERTENSION
     Dosage: 10 MG, QD
     Route: 048
  5. BYSTOLIC [Concomitant]
     Indication: HYPERTENSION
     Dosage: 10 MG, QHS
  6. TRAZODONE [Concomitant]
     Indication: INSOMNIA
     Dosage: QHS
  7. WELLBUTRIN [Concomitant]
     Indication: DEPRESSION
     Dosage: 100 MG, QD
  8. FOLIC ACID [Concomitant]
     Dosage: 1 MG, QD
  9. LANTUS [Concomitant]
     Indication: DIABETES MELLITUS
     Dosage: SLIDING SCALE QHS
  10. PREDNISONE [Concomitant]
     Indication: PAROXYSMAL NOCTURNAL HAEMOGLOBINURIA
     Dosage: 5 MG, QOD CHRONIC STEROID USE
  11. XALATAN [Concomitant]
     Indication: GLAUCOMA
     Dosage: OU QHS
  12. COQ10 [Concomitant]
     Dosage: UNK
  13. FISH OIL [Concomitant]
     Dosage: 2 TABS
  14. POTASSIUM [Concomitant]
     Dosage: 8 MEQ TID
  15. SOLIRIS [Suspect]
     Dosage: 900 MG, Q2WKS
     Route: 042
     Dates: start: 20080512
  16. HUMALOG [Concomitant]
     Indication: DIABETES MELLITUS
     Dosage: SLIDING SCALE

REACTIONS (4)
  - DEVICE OCCLUSION [None]
  - FATIGUE [None]
  - HAEMOGLOBIN DECREASED [None]
  - PALPITATIONS [None]
